FAERS Safety Report 7038742-4 (Version None)
Quarter: 2010Q4

REPORT INFORMATION
  Report Type: 
  Country: None (occurrence: None)
  Receive Date: 20101012
  Receipt Date: 20101001
  Transmission Date: 20110411
  Serious: Yes (Hospitalization)
  Sender: FDA-Public Use
  Company Number: US-BIOGENIDEC-2010BI001697

PATIENT
  Sex: Female

DRUGS (4)
  1. AVONEX [Suspect]
     Indication: MULTIPLE SCLEROSIS
     Route: 030
     Dates: start: 20090801
  2. AVONEX [Suspect]
     Route: 030
     Dates: start: 20090801
  3. AVONEX [Suspect]
     Route: 030
     Dates: start: 20080601, end: 20090801
  4. STEROIDS (NOS) [Concomitant]
     Indication: MULTIPLE SCLEROSIS RELAPSE

REACTIONS (9)
  - ABASIA [None]
  - BALANCE DISORDER [None]
  - BLOOD GLUCOSE INCREASED [None]
  - FOREIGN BODY ASPIRATION [None]
  - INTERVERTEBRAL DISC PROTRUSION [None]
  - MULTIPLE SCLEROSIS [None]
  - MULTIPLE SCLEROSIS RELAPSE [None]
  - MUSCLE SPASTICITY [None]
  - MUSCULAR WEAKNESS [None]
